FAERS Safety Report 5205805-5 (Version None)
Quarter: 2007Q1

REPORT INFORMATION
  Report Type: 
  Country: None (occurrence: None)
  Receive Date: 20070111
  Receipt Date: 20070108
  Transmission Date: 20070707
  Serious: Yes (Hospitalization, Other)
  Sender: FDA-Public Use
  Company Number: US-JNJFOC-20070101126

PATIENT
  Sex: Male
  Weight: 50.35 kg

DRUGS (1)
  1. REMICADE [Suspect]
     Indication: CROHN'S DISEASE

REACTIONS (2)
  - LABORATORY TEST ABNORMAL [None]
  - MALNUTRITION [None]
